FAERS Safety Report 16785373 (Version 1)
Quarter: 2019Q3

REPORT INFORMATION
  Report Type: Spontaneous
  Country: US (occurrence: US)
  Receive Date: 20190909
  Receipt Date: 20190909
  Transmission Date: 20191005
  Serious: No
  Sender: FDA-Public Use
  Company Number: US-MYLANLABS-2019M1081344

PATIENT
  Age: 63 Year
  Sex: Female
  Weight: 65.31 kg

DRUGS (2)
  1. ESTRADIOL. [Suspect]
     Active Substance: ESTRADIOL
     Indication: NIGHT SWEATS
  2. ESTRADIOL. [Suspect]
     Active Substance: ESTRADIOL
     Indication: HOT FLUSH
     Dosage: 0.1 MILLIGRAM
     Route: 062
     Dates: start: 2012

REACTIONS (2)
  - Product dose omission [Unknown]
  - Rash pruritic [Unknown]
